FAERS Safety Report 9081789 (Version 2)
Quarter: 2013Q2

REPORT INFORMATION
  Report Type: Spontaneous
  Country: US (occurrence: US)
  Receive Date: 20130218
  Receipt Date: 20130401
  Transmission Date: 20140414
  Serious: No
  Sender: FDA-Public Use
  Company Number: US-PFIZER INC-2013058061

PATIENT
  Age: 65 Year
  Sex: Male

DRUGS (39)
  1. ZOLOFT [Suspect]
     Indication: PANIC DISORDER
     Dosage: 200 MG, UNK
     Route: 048
  2. ZOLOFT [Suspect]
     Dosage: 100 MG, 2X/DAY
     Route: 048
  3. ZOLOFT [Suspect]
     Dosage: 200 MG, 1X/DAY (HS)
     Route: 048
  4. ZOLOFT [Suspect]
     Dosage: 50 MG, 2X/DAY
     Route: 048
     Dates: start: 20110728
  5. ZOLOFT [Suspect]
     Dosage: 50 MG, 3 TABLETS AT BED TIME
     Route: 048
     Dates: start: 20120410
  6. ZOLOFT [Suspect]
     Dosage: 100 MG, 1X/DAY
     Route: 048
  7. ZOLOFT [Suspect]
     Dosage: 250 MG, UNK
     Route: 048
  8. WELLBUTRIN SR [Concomitant]
     Dosage: 200 MG, 1X/DAY
     Route: 048
  9. WELLBUTRIN SR [Concomitant]
     Dosage: 150 MG, 2X/DAY
     Route: 048
     Dates: start: 20130103
  10. JANUVIA [Concomitant]
     Dosage: 100 MG, 1X/DAY
     Route: 048
     Dates: start: 20110728
  11. LAMOTRIGINE [Concomitant]
     Dosage: 25 MG, 3 TABLETS BY MOUTH THREE TIMES A DAY
     Route: 048
     Dates: start: 20110728
  12. HYDROCHLOROTHIAZIDE [Concomitant]
     Dosage: 25 MG, 1X/DAY
     Route: 048
     Dates: start: 20110728
  13. CLONAZEPAM [Concomitant]
     Dosage: 2 MG, 2X/DAY
     Route: 048
     Dates: start: 20110728
  14. POTASSIUM CHLORIDE [Concomitant]
     Dosage: 10 MEQ, 1X/DAY
     Route: 048
     Dates: start: 20110728
  15. METFORMIN [Concomitant]
     Dosage: 500 MG, 2X/DAY
     Route: 048
     Dates: start: 20110728
  16. GEMFIBROZIL [Concomitant]
     Dosage: 600 MG, 1X/DAY
     Route: 048
     Dates: start: 20110728
  17. GEMFIBROZIL [Concomitant]
     Dosage: 600 MG, 2X/DAY
     Route: 048
  18. DICLOFENAC SODIUM [Concomitant]
     Dosage: 75 MG, 2X/DAY
     Route: 048
     Dates: start: 20110913
  19. OMEPRAZOLE [Concomitant]
     Dosage: 40 MG, 1X/DAY
     Route: 048
     Dates: start: 20111116
  20. OMEPRAZOLE [Concomitant]
     Dosage: 20 MG, 1X/DAY
     Route: 048
  21. PYRIDOXINE [Concomitant]
     Dosage: 100 MG, 3X/DAY
     Route: 048
     Dates: start: 20111216
  22. PYRIDOXINE [Concomitant]
     Dosage: 50 MG, 1X/DAY
     Dates: start: 20120312
  23. LOMOTIL [Concomitant]
     Indication: DIARRHOEA
     Dosage: 2.5 MG-0.025 MG, 2 TABLETS FOUR TIMES A DAY
     Route: 048
     Dates: start: 20111209
  24. LISINOPRIL [Concomitant]
     Dosage: 10 MG, 1X/DAY
     Route: 048
     Dates: start: 20110728
  25. VIAGRA [Concomitant]
     Dosage: 50 MG, UNK
     Route: 048
     Dates: start: 20110728
  26. GLIMEPIRIDE [Concomitant]
     Dosage: 2 MG, 1X/DAY
     Route: 048
     Dates: start: 20130114
  27. METOPROLOL SUCCINATE [Concomitant]
     Dosage: 25 MG, 2X/DAY
     Route: 048
     Dates: start: 20130122
  28. GEODON [Concomitant]
     Dosage: 40 MG, 2X/DAY
     Route: 048
  29. GLYBURIDE [Concomitant]
     Dosage: 5 MG, BED TIME
     Route: 048
  30. PRIMIDONE [Concomitant]
     Dosage: 50 MG, 3X/DAY
     Route: 048
  31. TRAZODONE [Concomitant]
     Dosage: 100 MG, BED TIME
     Route: 048
  32. METOPROLOL TARTRATE [Concomitant]
     Dosage: 25 MG, 1X/DAY
     Route: 048
  33. KLOR-CON [Concomitant]
     Dosage: 1 DF, 1X/DAY
     Route: 048
  34. ZYRTEC [Concomitant]
     Dosage: 10 MG, 1X/DAY
     Route: 048
  35. LORAZEPAM [Concomitant]
     Indication: RESTLESSNESS
     Dosage: 1 MG, 4X/DAY
  36. LAMICTAL [Concomitant]
     Dosage: 100 MG, QHS
  37. ABILIFY [Concomitant]
  38. BUSPAR [Concomitant]
  39. ACETYLSALICYLIC ACID [Concomitant]

REACTIONS (17)
  - Drug ineffective [Unknown]
  - Tremor [Unknown]
  - Anxiety [Recovering/Resolving]
  - Restless legs syndrome [Unknown]
  - Fall [Unknown]
  - Excoriation [Unknown]
  - Muscle spasms [Unknown]
  - Insomnia [Unknown]
  - Muscle twitching [Unknown]
  - Abdominal pain [Unknown]
  - Pain in extremity [Unknown]
  - Abdominal pain upper [Unknown]
  - Depressed mood [Unknown]
  - Stress [Unknown]
  - Iron deficiency anaemia [Unknown]
  - Thrombocytopenia [Unknown]
  - Transaminases increased [Unknown]
